FAERS Safety Report 17419183 (Version 1)
Quarter: 2020Q1

REPORT INFORMATION
  Report Type: Spontaneous
  Country: US (occurrence: US)
  Receive Date: 20200214
  Receipt Date: 20200214
  Transmission Date: 20200409
  Serious: Yes (Disabling)
  Sender: FDA-Public Use
  Company Number: None

PATIENT
  Age: 61 Year
  Sex: Female
  Weight: 87.75 kg

DRUGS (16)
  1. FUROSEMIDE 40 MG [Concomitant]
     Active Substance: FUROSEMIDE
  2. TRAZODONE 300 MG [Concomitant]
  3. CLONAZEPAM 0.5 MG [Concomitant]
     Active Substance: CLONAZEPAM
  4. LEVOTHYROXINE SODIUM  125 MCG [Concomitant]
  5. CETIRIZINE [Concomitant]
     Active Substance: CETIRIZINE HYDROCHLORIDE
  6. SUPER B COMPLEX [Concomitant]
     Active Substance: CYANOCOBALAMIN\DEXPANTHENOL\NIACINAMIDE\PYRIDOXINE HYDROCHLORIDE\RIBOFLAVIN 5^-PHOSPHATE SODIUM\THIAMINE HYDROCHLORIDE\VITAMIN B COMPLEX
  7. ROPINIROLE 4 MG [Concomitant]
     Active Substance: ROPINIROLE HYDROCHLORIDE
  8. TIZANIDINE 4 MG [Concomitant]
     Active Substance: TIZANIDINE
  9. DULOXETINE 30 MG [Concomitant]
     Active Substance: DULOXETINE
  10. APLENZIN [Suspect]
     Active Substance: BUPROPION HYDROBROMIDE
     Indication: SEASONAL AFFECTIVE DISORDER
     Dosage: ?          QUANTITY:1 TABLET(S);?
     Route: 048
  11. DULOXETINE 60 MG [Concomitant]
     Active Substance: DULOXETINE
  12. MINOCYCLINE [Concomitant]
     Active Substance: MINOCYCLINE HYDROCHLORIDE
  13. METHYLPHENIDATE 20 MG TAB [Concomitant]
     Active Substance: METHYLPHENIDATE
  14. APLENZIN [Suspect]
     Active Substance: BUPROPION HYDROBROMIDE
     Indication: DEPRESSION
     Dosage: ?          QUANTITY:1 TABLET(S);?
     Route: 048
  15. FUROSEMIDE 40 MG [Concomitant]
     Active Substance: FUROSEMIDE
  16. FLONASE [Concomitant]
     Active Substance: FLUTICASONE PROPIONATE

REACTIONS (6)
  - Anxiety [None]
  - Balance disorder [None]
  - Vision blurred [None]
  - Sleep disorder [None]
  - Nausea [None]
  - Speech disorder [None]

NARRATIVE: CASE EVENT DATE: 20191218
